FAERS Safety Report 11625877 (Version 2)
Quarter: 2017Q2

REPORT INFORMATION
  Report Type: Spontaneous
  Country: US (occurrence: US)
  Receive Date: 20151013
  Receipt Date: 20170411
  Transmission Date: 20170829
  Serious: Yes (Other)
  Sender: FDA-Public Use
  Company Number: US-TEVA-600891USA

PATIENT
  Sex: Female

DRUGS (1)
  1. COPAXONE [Suspect]
     Active Substance: GLATIRAMER ACETATE
     Indication: MULTIPLE SCLEROSIS
     Route: 058

REACTIONS (6)
  - Hypersensitivity [Unknown]
  - Pain [Unknown]
  - Fatigue [Unknown]
  - Chills [Unknown]
  - Feeling abnormal [Unknown]
  - Pyrexia [Unknown]
